FAERS Safety Report 18126372 (Version 2)
Quarter: 2021Q1

REPORT INFORMATION
  Report Type: Spontaneous
  Country: US (occurrence: US)
  Receive Date: 20200808
  Receipt Date: 20210318
  Transmission Date: 20210419
  Serious: No
  Sender: FDA-Public Use
  Company Number: US-SA-2020SA201732

PATIENT
  Age: 64 Year
  Sex: Female

DRUGS (1)
  1. DUPIXENT [Suspect]
     Active Substance: DUPILUMAB
     Indication: DERMATITIS ATOPIC
     Dosage: 300 MG, QOW
     Route: 058
     Dates: start: 20200611

REACTIONS (7)
  - Ocular hyperaemia [Unknown]
  - Eye pain [Unknown]
  - Eyelid margin crusting [Unknown]
  - Pruritus [Unknown]
  - Erythema [Unknown]
  - Condition aggravated [Unknown]
  - Burning sensation [Unknown]

NARRATIVE: CASE EVENT DATE: 202007
